FAERS Safety Report 7983738-9 (Version None)
Quarter: 2011Q4

REPORT INFORMATION
  Report Type: 
  Country: None (occurrence: None)
  Receive Date: 20111215
  Receipt Date: 20111213
  Transmission Date: 20120403
  Serious: Yes (Death, Other)
  Sender: FDA-Public Use
  Company Number: TH-ROCHE-799877

PATIENT
  Sex: Female

DRUGS (7)
  1. MIRCERA [Suspect]
     Indication: NEPHROGENIC ANAEMIA
     Route: 058
     Dates: start: 20100331, end: 20101215
  2. RECORMON [Suspect]
     Indication: NEPHROGENIC ANAEMIA
     Route: 058
  3. RECORMON [Suspect]
     Route: 058
     Dates: start: 20080919, end: 20100304
  4. FOLIC ACID [Concomitant]
  5. CALCIUM CARBONATE [Concomitant]
  6. MIRCERA [Suspect]
     Route: 058
     Dates: start: 20110116, end: 20110830
  7. LIPITOR [Concomitant]

REACTIONS (6)
  - APLASIA PURE RED CELL [None]
  - SEPTIC SHOCK [None]
  - ANAEMIA HAEMOLYTIC AUTOIMMUNE [None]
  - PANCYTOPENIA [None]
  - THROMBOCYTOPENIA [None]
  - INFECTION [None]
